FAERS Safety Report 8489388-2 (Version None)
Quarter: 2012Q3

REPORT INFORMATION
  Report Type: 
  Country: None (occurrence: None)
  Receive Date: 20120705
  Receipt Date: 20120627
  Transmission Date: 20120928
  Serious: Yes (Hospitalization)
  Sender: FDA-Public Use
  Company Number: US-BRISTOL-MYERS SQUIBB COMPANY-16723033

PATIENT
  Age: 79 Year
  Sex: Female

DRUGS (10)
  1. ASCORBIC ACID [Concomitant]
     Dates: start: 20100413
  2. CALCIUM + VITAMIN D [Concomitant]
     Dates: start: 20081120
  3. LEVOTHYROXINE SODIUM [Concomitant]
     Dates: start: 20061102
  4. FENTANYL [Concomitant]
     Dates: start: 20111127
  5. ESTRAMUSTINE [Suspect]
     Indication: BREAST CANCER
     Dosage: LAST DOSE ON:26JUN12
     Dates: start: 20120419
  6. VITAMIN D [Concomitant]
     Dates: start: 20100413
  7. DOCUSATE SODIUM [Concomitant]
     Dates: start: 20120120
  8. DASATINIB [Suspect]
     Indication: BREAST CANCER METASTATIC
     Dosage: LAST DOSE ON:26JUN12
     Dates: start: 20120419
  9. PACLITAXEL [Suspect]
     Indication: BREAST CANCER METASTATIC
     Dosage: LAST DOSE ON:26JUN12
     Dates: start: 20120419
  10. SENNA-MINT WAF [Concomitant]
     Dates: start: 20111129

REACTIONS (1)
  - DYSPNOEA [None]
